APPROVED DRUG PRODUCT: ANTARA (MICRONIZED)
Active Ingredient: FENOFIBRATE
Strength: 30MG **Federal Register determination that product was not discontinued or withdrawn for safety or effectiveness reasons**
Dosage Form/Route: CAPSULE;ORAL
Application: N021695 | Product #004
Applicant: LUPIN INC
Approved: Oct 18, 2013 | RLD: Yes | RS: No | Type: DISCN